FAERS Safety Report 4328866-4 (Version None)
Quarter: 2004Q2

REPORT INFORMATION
  Report Type: 
  Country: None (occurrence: None)
  Receive Date: 20040401
  Receipt Date: 20040324
  Transmission Date: 20050107
  Serious: Yes (Other)
  Sender: FDA-Public Use
  Company Number: 200411286FR

PATIENT
  Age: 45 Year
  Sex: Female

DRUGS (3)
  1. ARAVA [Suspect]
     Indication: RHEUMATOID ARTHRITIS
     Route: 048
     Dates: start: 20000101
  2. NSAID'S [Concomitant]
  3. ANALGESIC LIQ [Concomitant]

REACTIONS (1)
  - HYPOACUSIS [None]
